FAERS Safety Report 8300159-X (Version None)
Quarter: 2012Q2

REPORT INFORMATION
  Report Type: 
  Country: None (occurrence: None)
  Receive Date: 20120420
  Receipt Date: 20120412
  Transmission Date: 20120825
  Serious: Yes (Other)
  Sender: FDA-Public Use
  Company Number: US-BAYER-2012-016892

PATIENT
  Age: 24 Year
  Sex: Female
  Weight: 80.272 kg

DRUGS (5)
  1. MIRENA [Suspect]
     Indication: MIGRAINE
     Dosage: UNK
     Route: 015
     Dates: start: 20100812, end: 20120214
  2. FIORICET [Concomitant]
     Dosage: UNK
  3. XANAX [Concomitant]
     Dosage: 0.25 MG, PRN
  4. TOPAMAX [Concomitant]
     Dosage: 25 MG, QD
  5. CELEXA [Concomitant]

REACTIONS (3)
  - UTERINE PAIN [None]
  - ABDOMINAL PAIN [None]
  - GENITAL HAEMORRHAGE [None]
